FAERS Safety Report 17130650 (Version 1)
Quarter: 2019Q4

REPORT INFORMATION
  Report Type: Spontaneous
  Country: DE (occurrence: DE)
  Receive Date: 20191209
  Receipt Date: 20191209
  Transmission Date: 20200122
  Serious: Yes (Other)
  Sender: FDA-Public Use
  Company Number: DE-MYLANLABS-2019M1119969

PATIENT
  Age: 36 Year
  Sex: Female
  Weight: 61 kg

DRUGS (2)
  1. CIPROFLOXACIN. [Suspect]
     Active Substance: CIPROFLOXACIN
     Indication: PRODUCT USED FOR UNKNOWN INDICATION
     Dosage: CIPROFLOXACIN 250MG
     Route: 048
     Dates: start: 20181016, end: 20181027
  2. LEVOFLOXACIN. [Suspect]
     Active Substance: LEVOFLOXACIN
     Indication: PRODUCT USED FOR UNKNOWN INDICATION
     Dosage: 500 MILLIGRAM
     Route: 065

REACTIONS (14)
  - Feeling of despair [Not Recovered/Not Resolved]
  - Tendon pain [Not Recovered/Not Resolved]
  - Somnolence [Not Recovered/Not Resolved]
  - Dysstasia [Not Recovered/Not Resolved]
  - Bone pain [Not Recovered/Not Resolved]
  - Depression [Not Recovered/Not Resolved]
  - Alopecia [Not Recovered/Not Resolved]
  - Suicidal ideation [Not Recovered/Not Resolved]
  - Walking disability [Not Recovered/Not Resolved]
  - Anxiety [Not Recovered/Not Resolved]
  - Myalgia [Not Recovered/Not Resolved]
  - Skin burning sensation [Not Recovered/Not Resolved]
  - Coccydynia [Not Recovered/Not Resolved]
  - Accommodation disorder [Not Recovered/Not Resolved]

NARRATIVE: CASE EVENT DATE: 20181018
